FAERS Safety Report 5671343-9 (Version None)
Quarter: 2008Q1

REPORT INFORMATION
  Report Type: 
  Country: None (occurrence: None)
  Receive Date: 20080312
  Receipt Date: 20080303
  Transmission Date: 20080703
  Serious: Yes (Other)
  Sender: FDA-Public Use
  Company Number: WAES  0802USA05752

PATIENT
  Age: 67 Year
  Sex: Male

DRUGS (5)
  1. ZETIA [Suspect]
     Indication: HYPERCHOLESTEROLAEMIA
     Dosage: 10 MG/DAILY, PO
     Route: 048
     Dates: start: 20071213, end: 20080117
  2. CILNIDIPINE [Concomitant]
  3. DILTIAZEM HCL [Concomitant]
  4. FUROSEMIDE [Concomitant]
  5. GLIMEPIRIDE [Concomitant]

REACTIONS (2)
  - OEDEMA PERIPHERAL [None]
  - SCROTAL OEDEMA [None]
